FAERS Safety Report 4727397-7 (Version None)
Quarter: 2005Q3

REPORT INFORMATION
  Report Type: 
  Country: None (occurrence: None)
  Receive Date: 20050727
  Receipt Date: 20050727
  Transmission Date: 20060218
  Serious: No
  Sender: FDA-Public Use
  Company Number: None

PATIENT
  Age: 57 Year
  Sex: Male
  Weight: 79.9 kg

DRUGS (6)
  1. HYDROCHLOROTHIAZIDE [Suspect]
     Indication: HYPERTENSION
     Dosage: 25 MG, 25 MG QD, ORAL
     Route: 048
  2. ATENOLOL [Concomitant]
  3. COLCHICINE [Concomitant]
  4. FELODIPINE [Concomitant]
  5. OMEPRAZOLE [Concomitant]
  6. SILDENAFIL CITRATE [Concomitant]

REACTIONS (2)
  - ARTHROPATHY [None]
  - PAIN [None]
